FAERS Safety Report 8117361-2 (Version None)
Quarter: 2012Q1

REPORT INFORMATION
  Report Type: 
  Country: None (occurrence: None)
  Receive Date: 20120206
  Receipt Date: 20120127
  Transmission Date: 20120608
  Serious: Yes (Other)
  Sender: FDA-Public Use
  Company Number: IT-ASTRAZENECA-2012SE06120

PATIENT
  Age: 63 Year
  Sex: Male
  Weight: 133 kg

DRUGS (3)
  1. ROCURONIUM BROMIDE [Interacting]
  2. REMIFENTANIL [Concomitant]
     Indication: ANAESTHESIA
  3. PROPOFOL [Suspect]
     Indication: ANAESTHESIA

REACTIONS (2)
  - INHIBITORY DRUG INTERACTION [None]
  - NEUROMUSCULAR BLOCK PROLONGED [None]
